FAERS Safety Report 5940936-3 (Version None)
Quarter: 2008Q4

REPORT INFORMATION
  Report Type: 
  Country: None (occurrence: None)
  Receive Date: 20081104
  Receipt Date: 20081023
  Transmission Date: 20090506
  Serious: Yes (Hospitalization, Other)
  Sender: FDA-Public Use
  Company Number: US-ELI_LILLY_AND_COMPANY-US200810006191

PATIENT
  Sex: Female

DRUGS (2)
  1. BYETTA [Suspect]
     Indication: TYPE 2 DIABETES MELLITUS
     Dosage: UNK, 2/D
     Dates: start: 20070101
  2. ACTOS [Concomitant]
     Dosage: UNK, UNKNOWN
     Dates: end: 20070101

REACTIONS (12)
  - CARDIAC FAILURE CONGESTIVE [None]
  - CYSTITIS [None]
  - DYSPNOEA [None]
  - FATIGUE [None]
  - HEART RATE IRREGULAR [None]
  - MEMORY IMPAIRMENT [None]
  - NAUSEA [None]
  - PALPITATIONS [None]
  - PNEUMOTHORAX [None]
  - RENAL CYST [None]
  - SWELLING [None]
  - VOMITING [None]
